FAERS Safety Report 9045360 (Version 1)
Quarter: 2013Q1

REPORT INFORMATION
  Report Type: Spontaneous
  Country: PR (occurrence: PR)
  Receive Date: 20130131
  Receipt Date: 20130131
  Transmission Date: 20140127
  Serious: No
  Sender: FDA-Public Use
  Company Number: PR-ABBOTT-12P-131-0935848-00

PATIENT
  Sex: Female
  Weight: 75.82 kg

DRUGS (7)
  1. HUMIRA [Suspect]
     Indication: PSORIASIS
     Route: 058
     Dates: start: 2009, end: 201205
  2. HUMIRA [Suspect]
     Route: 058
     Dates: start: 201205, end: 201206
  3. ZANTAC [Concomitant]
     Indication: GASTRITIS
     Route: 048
     Dates: start: 2006
  4. EVISTA [Concomitant]
     Indication: OSTEOARTHRITIS
     Route: 048
     Dates: start: 2009
  5. PREVACID [Concomitant]
     Indication: GASTRITIS
     Route: 048
     Dates: start: 2006
  6. KLONOPIN [Concomitant]
     Indication: DEPRESSION
     Dosage: AT BEDTIME
     Route: 048
     Dates: start: 2006
  7. ZOLOFT [Concomitant]
     Indication: DEPRESSION
     Route: 048
     Dates: start: 2006

REACTIONS (5)
  - Osteoarthritis [Recovering/Resolving]
  - Nasopharyngitis [Recovered/Resolved]
  - Rash [Recovered/Resolved]
  - Chest pain [Recovered/Resolved]
  - Psoriasis [Unknown]
